FAERS Safety Report 12544869 (Version 1)
Quarter: 2016Q3

REPORT INFORMATION
  Report Type: Spontaneous
  Country: US (occurrence: US)
  Receive Date: 20160711
  Receipt Date: 20160711
  Transmission Date: 20161109
  Serious: Yes (Hospitalization)
  Sender: FDA-Public Use
  Company Number: US-TEVA-673450USA

PATIENT
  Age: 48 Year
  Sex: Male
  Weight: 72.64 kg

DRUGS (12)
  1. VICODIN [Concomitant]
     Active Substance: ACETAMINOPHEN\HYDROCODONE BITARTRATE
     Indication: PAIN
     Dates: start: 2004, end: 2010
  2. ASPIRIN. [Concomitant]
     Active Substance: ASPIRIN
     Indication: PAIN
  3. ACTIQ [Suspect]
     Active Substance: FENTANYL CITRATE
     Dosage: 200 MICROGRAM DAILY;
     Route: 048
     Dates: start: 2013
  4. VICODIN HP [Concomitant]
     Active Substance: ACETAMINOPHEN\HYDROCODONE BITARTRATE
     Indication: PAIN
  5. SOMA [Concomitant]
     Active Substance: CARISOPRODOL
  6. FENTORA [Suspect]
     Active Substance: FENTANYL CITRATE
     Indication: PAIN
     Dates: start: 2008
  7. ACTIQ [Suspect]
     Active Substance: FENTANYL CITRATE
     Indication: PAIN
     Dosage: 1200 MICROGRAM DAILY;
     Route: 048
     Dates: start: 201507, end: 201604
  8. ACTIQ [Suspect]
     Active Substance: FENTANYL CITRATE
     Route: 048
     Dates: start: 2004
  9. OXYCONTIN [Concomitant]
     Active Substance: OXYCODONE HYDROCHLORIDE
     Indication: PAIN
  10. OXYCODONE IMMEDIATE RELEASE [Concomitant]
     Active Substance: OXYCODONE
  11. FENTANYL TRANSDERMAL SYSTEM [Suspect]
     Active Substance: FENTANYL
     Indication: PAIN
     Route: 062
     Dates: start: 2010
  12. EXCEDRIN [Concomitant]
     Active Substance: ACETAMINOPHEN\ASPIRIN\CAFFEINE
     Indication: PAIN

REACTIONS (8)
  - Back pain [Unknown]
  - Peyronie^s disease [Not Recovered/Not Resolved]
  - Product use issue [Unknown]
  - Pain [Unknown]
  - Neck pain [Unknown]
  - Hypokinesia [Recovered/Resolved]
  - Blood pressure fluctuation [Unknown]
  - Bedridden [Recovered/Resolved]

NARRATIVE: CASE EVENT DATE: 201511
